FAERS Safety Report 5465461-8 (Version None)
Quarter: 2007Q3

REPORT INFORMATION
  Report Type: 
  Country: None (occurrence: None)
  Receive Date: 20070920
  Receipt Date: 20070920
  Transmission Date: 20080115
  Serious: No
  Sender: FDA-Public Use
  Company Number: None

PATIENT
  Age: 49 Year
  Sex: Male
  Weight: 76.2043 kg

DRUGS (3)
  1. BACTRIM DS [Suspect]
     Indication: ARTHROPOD BITE
     Dosage: 1 CAPLET TWICE A DAY PO
     Route: 048
     Dates: start: 20070911, end: 20070911
  2. BACTRIM DS [Suspect]
     Indication: FURUNCLE
     Dosage: 1 CAPLET TWICE A DAY PO
     Route: 048
     Dates: start: 20070911, end: 20070911
  3. BACTRIM DS [Suspect]
     Indication: SWELLING
     Dosage: 1 CAPLET TWICE A DAY PO
     Route: 048
     Dates: start: 20070911, end: 20070911

REACTIONS (6)
  - CHILLS [None]
  - HYPOAESTHESIA [None]
  - PAIN [None]
  - PAIN IN EXTREMITY [None]
  - PARAESTHESIA [None]
  - PYREXIA [None]
